FAERS Safety Report 11471576 (Version 2)
Quarter: 2015Q3

REPORT INFORMATION
  Report Type: Spontaneous
  Country: US (occurrence: US)
  Receive Date: 20150903
  Receipt Date: 20150903
  Transmission Date: 20151125
  Serious: No
  Sender: FDA-Public Use
  Company Number: US-ELI_LILLY_AND_COMPANY-US201203002267

PATIENT
  Age: 54 Year
  Sex: Male

DRUGS (4)
  1. CYMBALTA [Suspect]
     Active Substance: DULOXETINE HYDROCHLORIDE
     Dosage: 30 MG, QD
  2. CYMBALTA [Suspect]
     Active Substance: DULOXETINE HYDROCHLORIDE
     Dosage: 60 MG, UNK
  3. CYMBALTA [Suspect]
     Active Substance: DULOXETINE HYDROCHLORIDE
     Indication: DEPRESSION
     Dosage: 30 MG, UNK
     Dates: start: 201111
  4. CYMBALTA [Suspect]
     Active Substance: DULOXETINE HYDROCHLORIDE
     Dosage: 30 MG, QOD
     Dates: end: 20120216

REACTIONS (12)
  - Headache [Unknown]
  - Thinking abnormal [Unknown]
  - Paraesthesia [Recovering/Resolving]
  - Hyperhidrosis [Unknown]
  - Memory impairment [Unknown]
  - Burning sensation [Not Recovered/Not Resolved]
  - Bowel movement irregularity [Unknown]
  - Hot flush [Not Recovered/Not Resolved]
  - Nausea [Unknown]
  - Apathy [Unknown]
  - Palpitations [Not Recovered/Not Resolved]
  - Drug withdrawal syndrome [Not Recovered/Not Resolved]
